FAERS Safety Report 9607048 (Version 2)
Quarter: 2014Q1

REPORT INFORMATION
  Report Type: Spontaneous
  Country: JP (occurrence: JP)
  Receive Date: 20131009
  Receipt Date: 20140122
  Transmission Date: 20141002
  Serious: Yes (Hospitalization)
  Sender: FDA-Public Use
  Company Number: JP-ROCHE-1286147

PATIENT
  Age: 63 Year
  Sex: Female

DRUGS (26)
  1. AVASTIN [Suspect]
     Indication: BREAST CANCER METASTATIC
     Route: 041
     Dates: start: 20130702, end: 20130910
  2. PACLITAXEL [Concomitant]
     Indication: BREAST CANCER METASTATIC
     Route: 041
     Dates: start: 20130507, end: 20130910
  3. RANITIDINE HYDROCHLORIDE [Concomitant]
     Indication: PROPHYLAXIS
     Route: 042
     Dates: start: 20130507, end: 20130910
  4. DEXART [Concomitant]
     Indication: PROPHYLAXIS
     Route: 042
     Dates: start: 20130507, end: 20130910
  5. VENA [Concomitant]
     Indication: PROPHYLAXIS
     Route: 048
     Dates: start: 20130507, end: 20130910
  6. GOSHAJINKIGAN [Concomitant]
     Indication: PROPHYLAXIS
     Route: 048
  7. VITAMEDIN (JAPAN) [Concomitant]
     Indication: PROPHYLAXIS
     Route: 048
  8. AMARYL [Concomitant]
     Indication: DIABETES MELLITUS
     Route: 048
  9. VILDAGLIPTIN [Concomitant]
     Indication: DIABETES MELLITUS
     Dosage: DRUG REPORTED AS : EQUA
     Route: 048
  10. BAYASPIRIN [Concomitant]
     Route: 048
  11. THYRADIN-S [Concomitant]
     Route: 048
  12. ALOSENN [Concomitant]
     Route: 048
  13. PURSENNID [Concomitant]
     Route: 048
  14. LIPITOR [Concomitant]
     Route: 048
  15. CONIEL [Concomitant]
     Route: 048
  16. LOXONIN [Concomitant]
     Route: 048
  17. MEDET [Concomitant]
     Route: 048
  18. GASTER D [Concomitant]
     Route: 048
  19. MAGMITT [Concomitant]
     Route: 048
  20. GASMOTIN [Concomitant]
     Route: 048
  21. SIGMART [Concomitant]
     Route: 048
  22. NITRODERM TTS [Concomitant]
     Route: 062
  23. HALCION [Concomitant]
     Route: 048
  24. ETHYL ICOSAPENTATE [Concomitant]
     Dosage: DRUG REPORTED AS : EPADEL S
     Route: 048
  25. EVISTA [Concomitant]
     Route: 048
  26. NABOAL [Concomitant]
     Route: 048

REACTIONS (1)
  - Pancreatitis [Recovered/Resolved]
